FAERS Safety Report 11875880 (Version 2)
Quarter: 2016Q1

REPORT INFORMATION
  Report Type: Spontaneous
  Country: FR (occurrence: FR)
  Receive Date: 20151229
  Receipt Date: 20160216
  Transmission Date: 20160526
  Serious: Yes (Other)
  Sender: FDA-Public Use
  Company Number: FR-ACORDA-ACO_120297_2015

PATIENT
  Sex: Female

DRUGS (4)
  1. QUTENZA [Suspect]
     Active Substance: CAPSAICIN
     Dosage: UNK, UNKNOWN FREQ.
     Route: 061
     Dates: start: 20141202, end: 20141202
  2. QUTENZA [Suspect]
     Active Substance: CAPSAICIN
     Indication: NEURALGIA
     Dosage: UNK, UNKNOWN FREQ.
     Route: 061
     Dates: start: 201506, end: 201506
  3. QUTENZA [Suspect]
     Active Substance: CAPSAICIN
     Dosage: UNK, UNKNOWN FREQ.
     Route: 061
     Dates: start: 20150125, end: 20150125
  4. QUTENZA [Suspect]
     Active Substance: CAPSAICIN
     Dosage: UNK, UNKNOWN FREQ.
     Route: 061
     Dates: start: 20150102, end: 20150102

REACTIONS (4)
  - Application site burn [Recovered/Resolved]
  - Drug ineffective [Unknown]
  - Blister [Recovered/Resolved]
  - Inappropriate schedule of drug administration [Unknown]
